FAERS Safety Report 11057434 (Version 1)
Quarter: 2015Q2

REPORT INFORMATION
  Report Type: Spontaneous
  Country: US (occurrence: US)
  Receive Date: 20150422
  Receipt Date: 20150422
  Transmission Date: 20150821
  Serious: No
  Sender: FDA-Public Use
  Company Number: US-LUNDBECK-DKLU1110508

PATIENT
  Sex: Male

DRUGS (4)
  1. NORTHERA [Suspect]
     Active Substance: DROXIDOPA
     Indication: ORTHOSTATIC HYPOTENSION
  2. FLUDROCORTISONE [Concomitant]
     Active Substance: FLUDROCORTISONE
     Indication: ORTHOSTATIC HYPOTENSION
  3. MIDODRINE [Concomitant]
     Active Substance: MIDODRINE
     Indication: ORTHOSTATIC HYPOTENSION
  4. NORTHERA [Suspect]
     Active Substance: DROXIDOPA
     Indication: PARKINSON^S DISEASE
     Route: 048
     Dates: start: 20150304

REACTIONS (1)
  - Blood pressure abnormal [Unknown]
